FAERS Safety Report 16444771 (Version 1)
Quarter: 2019Q2

REPORT INFORMATION
  Report Type: Spontaneous
  Country: US (occurrence: US)
  Receive Date: 20190618
  Receipt Date: 20190618
  Transmission Date: 20190711
  Serious: Yes (Other)
  Sender: FDA-Public Use
  Company Number: US-ELI_LILLY_AND_COMPANY-US201906004005

PATIENT
  Sex: Male

DRUGS (2)
  1. HUMALOG KWIKPEN [Suspect]
     Active Substance: INSULIN LISPRO
     Dosage: 180 U, DAILY (150-180 U DAILY, 90-95 U PER MEAL)
     Route: 058
  2. HUMALOG KWIKPEN [Suspect]
     Active Substance: INSULIN LISPRO
     Indication: DIABETES MELLITUS
     Dosage: 180 U, DAILY (150-180 U DAILY, 90-95 U PER MEAL)
     Route: 058
     Dates: start: 2014

REACTIONS (2)
  - Pain [Unknown]
  - Renal failure [Unknown]

NARRATIVE: CASE EVENT DATE: 2018
